FAERS Safety Report 12936359 (Version 3)
Quarter: 2017Q1

REPORT INFORMATION
  Report Type: Spontaneous
  Country: JP (occurrence: JP)
  Receive Date: 20161114
  Receipt Date: 20170223
  Transmission Date: 20170428
  Serious: Yes (Other)
  Sender: FDA-Public Use
  Company Number: PHJP2016JP032124

PATIENT
  Sex: Female

DRUGS (1)
  1. COSENTYX [Suspect]
     Active Substance: SECUKINUMAB
     Indication: PSORIATIC ARTHROPATHY
     Dosage: 300 MG, PER ADMINISTRATION
     Route: 058
     Dates: start: 201508

REACTIONS (3)
  - Concomitant disease progression [Unknown]
  - Basedow^s disease [Unknown]
  - Thyroid function test abnormal [Unknown]
